FAERS Safety Report 10273490 (Version 1)
Quarter: 2014Q2

REPORT INFORMATION
  Report Type: Spontaneous
  Country: US (occurrence: None)
  Receive Date: 20140630
  Receipt Date: 20140630
  Transmission Date: 20141212
  Serious: Yes (Life-Threatening, Hospitalization)
  Sender: FDA-Public Use
  Company Number: None

PATIENT
  Age: 18 Year
  Sex: Female
  Weight: 95.26 kg

DRUGS (2)
  1. BEYAZ [Suspect]
     Indication: MENSTRUAL DISORDER
     Dosage: 1 PILL
     Route: 048
     Dates: start: 20140401, end: 20140626
  2. MOTRIN [Concomitant]

REACTIONS (7)
  - Fatigue [None]
  - Abasia [None]
  - Dizziness [None]
  - Insomnia [None]
  - Crying [None]
  - Pulmonary embolism [None]
  - Tachycardia [None]
